FAERS Safety Report 12562235 (Version 1)
Quarter: 2016Q3

REPORT INFORMATION
  Report Type: Spontaneous
  Country: IR (occurrence: IR)
  Receive Date: 20160715
  Receipt Date: 20160715
  Transmission Date: 20161109
  Serious: Yes (Hospitalization)
  Sender: FDA-Public Use
  Company Number: IR-UNICHEM LABORATORIES LIMITED-UCM201607-000148

PATIENT
  Age: 18 Year
  Sex: Female

DRUGS (1)
  1. DIVALPROEX SODIUM. [Suspect]
     Active Substance: DIVALPROEX SODIUM

REACTIONS (7)
  - Toxicity to various agents [Unknown]
  - Subarachnoid haemorrhage [Not Recovered/Not Resolved]
  - Intentional overdose [Unknown]
  - Optic neuritis [Unknown]
  - Brain oedema [Unknown]
  - Hyperammonaemia [Recovered/Resolved]
  - Coma [Recovered/Resolved]
